FAERS Safety Report 8130080-1 (Version None)
Quarter: 2012Q1

REPORT INFORMATION
  Report Type: 
  Country: None (occurrence: None)
  Receive Date: 20120210
  Receipt Date: 20120201
  Transmission Date: 20120608
  Serious: Yes (Hospitalization)
  Sender: FDA-Public Use
  Company Number: ZA-PFIZER INC-2011269089

PATIENT
  Age: 45 Year
  Sex: Male

DRUGS (4)
  1. TORISEL [Suspect]
     Indication: RENAL CELL CARCINOMA
     Dosage: 25 MG, WEEKLY
     Route: 042
     Dates: start: 20110614, end: 20120110
  2. WARFARIN [Concomitant]
     Indication: PULMONARY EMBOLISM
     Dosage: UNK
     Route: 048
  3. FLUTICASONE [Concomitant]
     Dosage: UNK
  4. GLUCOPHAGE [Concomitant]
     Indication: DIABETES MELLITUS
     Dosage: UNK
     Route: 048

REACTIONS (7)
  - COUGH [None]
  - BRONCHITIS [None]
  - VOMITING [None]
  - MALAISE [None]
  - DIZZINESS [None]
  - NAUSEA [None]
  - LUNG INFECTION [None]
